FAERS Safety Report 11185384 (Version 1)
Quarter: 2015Q2

REPORT INFORMATION
  Report Type: Spontaneous
  Country: TW (occurrence: TW)
  Receive Date: 20150612
  Receipt Date: 20150612
  Transmission Date: 20150821
  Serious: Yes (Death, Hospitalization)
  Sender: FDA-Public Use
  Company Number: TW-BAYER-2015-307832

PATIENT
  Age: 77 Year
  Sex: Female

DRUGS (10)
  1. CAPTOPRIL. [Suspect]
     Active Substance: CAPTOPRIL
     Indication: PERCUTANEOUS CORONARY INTERVENTION
  2. FLOMOXEF [Concomitant]
     Active Substance: FLOMOXEF
     Indication: URINARY TRACT INFECTION
  3. CLOPIDOGREL [Suspect]
     Active Substance: CLOPIDOGREL BISULFATE
     Indication: HYPERTENSION
  4. CAPTOPRIL. [Suspect]
     Active Substance: CAPTOPRIL
     Indication: HYPERTENSION
  5. ASPIRIN PROTECT [Suspect]
     Active Substance: ASPIRIN
     Indication: PERCUTANEOUS CORONARY INTERVENTION
     Dosage: UNK
  6. CLOPIDOGREL [Suspect]
     Active Substance: CLOPIDOGREL BISULFATE
     Indication: CARDIAC FAILURE
  7. ASPIRIN PROTECT [Suspect]
     Active Substance: ASPIRIN
     Indication: HYPERTENSION
  8. CLOPIDOGREL [Suspect]
     Active Substance: CLOPIDOGREL BISULFATE
     Indication: PERCUTANEOUS CORONARY INTERVENTION
  9. CAPTOPRIL. [Suspect]
     Active Substance: CAPTOPRIL
     Indication: CARDIAC FAILURE
  10. ASPIRIN PROTECT [Suspect]
     Active Substance: ASPIRIN
     Indication: CARDIAC FAILURE

REACTIONS (4)
  - Sepsis [Fatal]
  - Infection [Fatal]
  - Cardiac failure [Fatal]
  - Drug reaction with eosinophilia and systemic symptoms [Fatal]
